FAERS Safety Report 13773236 (Version 3)
Quarter: 2018Q1

REPORT INFORMATION
  Report Type: Spontaneous
  Country: US (occurrence: US)
  Receive Date: 20170720
  Receipt Date: 20180314
  Transmission Date: 20180508
  Serious: Yes (Life-Threatening, Hospitalization, Other)
  Sender: FDA-Public Use
  Company Number: US-PFIZER INC-2017309303

PATIENT
  Age: 69 Year
  Sex: Male

DRUGS (3)
  1. IBRUTINIB [Interacting]
     Active Substance: IBRUTINIB
     Indication: LYMPHOCYTIC LYMPHOMA
     Dosage: UNK
  2. RIVAROXABAN [Interacting]
     Active Substance: RIVAROXABAN
     Indication: COAGULOPATHY
     Dosage: UNK
  3. DILTIAZEM HCL [Suspect]
     Active Substance: DILTIAZEM HYDROCHLORIDE
     Indication: ATRIAL FIBRILLATION
     Dosage: UNK

REACTIONS (2)
  - Drug interaction [Recovered/Resolved]
  - Pericardial haemorrhage [Recovered/Resolved]
